FAERS Safety Report 6522910-1 (Version None)
Quarter: 2009Q4

REPORT INFORMATION
  Report Type: 
  Country: None (occurrence: None)
  Receive Date: 20091230
  Receipt Date: 20091221
  Transmission Date: 20100525
  Serious: Yes (Hospitalization, Disabling)
  Sender: FDA-Public Use
  Company Number: DK-AMGEN-US289969

PATIENT
  Sex: Female

DRUGS (5)
  1. ENBREL [Suspect]
     Indication: ANKYLOSING SPONDYLITIS
     Route: 058
     Dates: start: 20070607, end: 20080609
  2. CENTYL MITE W/POTASSIUM CHLORIDE [Concomitant]
  3. OROFEN - SLOW RELEASE [Concomitant]
  4. ACETAMINOPHEN [Concomitant]
  5. METOPROLOL TARTRATE [Concomitant]

REACTIONS (6)
  - ABDOMINAL PAIN [None]
  - ALANINE AMINOTRANSFERASE INCREASED [None]
  - DIARRHOEA [None]
  - HEPATIC STEATOSIS [None]
  - PYREXIA [None]
  - VOMITING [None]
